FAERS Safety Report 11849933 (Version 2)
Quarter: 2016Q1

REPORT INFORMATION
  Report Type: Spontaneous
  Country: US (occurrence: US)
  Receive Date: 20151218
  Receipt Date: 20160216
  Transmission Date: 20160526
  Serious: Yes (Hospitalization, Other)
  Sender: FDA-Public Use
  Company Number: US-PFIZER INC-2015437054

PATIENT

DRUGS (1)
  1. IBRANCE [Suspect]
     Active Substance: PALBOCICLIB
     Indication: BREAST CANCER
     Dosage: 125 MG, CYCLIC (21 DAYS ON, 7 OFF)
     Route: 048
     Dates: start: 20150903

REACTIONS (3)
  - Cellulitis [Recovered/Resolved]
  - Clostridium difficile infection [Unknown]
  - Neutropenia [Unknown]

NARRATIVE: CASE EVENT DATE: 20151116
